FAERS Safety Report 4966654-6 (Version None)
Quarter: 2006Q2

REPORT INFORMATION
  Report Type: 
  Country: None (occurrence: None)
  Receive Date: 20060407
  Receipt Date: 20041007
  Transmission Date: 20061013
  Serious: Yes (Hospitalization)
  Sender: FDA-Public Use
  Company Number: FR-ABBOTT-04P-056-0276690-00

PATIENT
  Age: 34 Year
  Sex: Male

DRUGS (10)
  1. DEPAKENE [Suspect]
     Indication: EPILEPSY
     Route: 048
     Dates: start: 19720101
  2. DEPAKENE [Suspect]
     Route: 048
  3. GABAPENTIN [Concomitant]
     Indication: EPILEPSY
     Route: 048
     Dates: start: 19720101
  4. CARBAMAZEPINE [Concomitant]
     Indication: EPILEPSY
     Route: 048
  5. PERICIAZINE [Concomitant]
     Indication: ABNORMAL BEHAVIOUR
     Route: 048
  6. TRIHEXYPHENIDYL HYDROCHLORIDE [Concomitant]
     Indication: PARKINSON'S DISEASE
     Route: 048
  7. FLUPHENAZINE DECANOATE [Concomitant]
     Indication: DRUG USE FOR UNKNOWN INDICATION
     Route: 030
  8. CLONAZEPAM [Concomitant]
     Indication: EPILEPSY
     Route: 048
  9. CYAMEMAZINE [Concomitant]
     Indication: DRUG USE FOR UNKNOWN INDICATION
     Route: 030
  10. DIAZEPAM [Concomitant]
     Indication: DRUG USE FOR UNKNOWN INDICATION
     Route: 054

REACTIONS (8)
  - ANTICONVULSANT DRUG LEVEL INCREASED [None]
  - CONVULSION [None]
  - DRUG EFFECT DECREASED [None]
  - FALL [None]
  - HAEMORRHAGE [None]
  - RENAL DISORDER [None]
  - SKIN LACERATION [None]
  - VON WILLEBRAND'S DISEASE [None]
